FAERS Safety Report 9465659 (Version 7)
Quarter: 2014Q4

REPORT INFORMATION
  Report Type: Report from Study
  Country: US (occurrence: US)
  Receive Date: 20130820
  Receipt Date: 20141006
  Transmission Date: 20150529
  Serious: Yes (Other)
  Sender: FDA-Public Use
  Company Number: US-SANOFI-AVENTIS-2013SA072067

PATIENT
  Age: 47 Year
  Sex: Female

DRUGS (4)
  1. AUBAGIO [Suspect]
     Active Substance: TERIFLUNOMIDE
     Indication: MULTIPLE SCLEROSIS
     Dosage: TAKEN FROM: 30 DAYS AGO
     Route: 048
     Dates: start: 20130612, end: 20140805
  2. CORTICOSTEROID NOS [Concomitant]
     Active Substance: CORTICOSTEROID NOS
  3. AUBAGIO [Suspect]
     Active Substance: TERIFLUNOMIDE
     Indication: MULTIPLE SCLEROSIS
     Route: 048
     Dates: start: 2014
  4. ANTIDEPRESSANTS [Concomitant]
     Active Substance: UNSPECIFIED INGREDIENT
     Indication: DEPRESSION

REACTIONS (13)
  - Pain [Unknown]
  - Nerve injury [Unknown]
  - Fall [Unknown]
  - Drug dose omission [Unknown]
  - Orthosis user [Unknown]
  - Depression [Unknown]
  - Chromaturia [Not Recovered/Not Resolved]
  - Alopecia [Unknown]
  - Breast mass [Unknown]
  - Multiple sclerosis [Unknown]
  - Ocular icterus [Unknown]
  - Chest pain [Unknown]
  - Contusion [Unknown]
